FAERS Safety Report 23291005 (Version 3)
Quarter: 2025Q3

REPORT INFORMATION
  Report Type: Report from Study
  Country: US (occurrence: US)
  Receive Date: 20231213
  Receipt Date: 20250828
  Transmission Date: 20251020
  Serious: Yes (Hospitalization)
  Sender: ROCHE
  Company Number: US-ROCHE-3359481

PATIENT
  Sex: Male

DRUGS (15)
  1. CELLCEPT [Suspect]
     Active Substance: MYCOPHENOLATE MOFETIL
     Indication: Warm autoimmune haemolytic anaemia
     Dosage: 50 MG TABLET
     Route: 048
  2. METFORMIN [Concomitant]
     Active Substance: METFORMIN HYDROCHLORIDE
  3. CYCLOPHOSPHAMIDE [Concomitant]
     Active Substance: CYCLOPHOSPHAMIDE
  4. DEXAMETHASONE [Concomitant]
     Active Substance: DEXAMETHASONE
  5. DOXYCYCLINE [Concomitant]
     Active Substance: DOXYCYCLINE
  6. FOLIC ACID [Concomitant]
     Active Substance: FOLIC ACID
  7. LASIX [Concomitant]
     Active Substance: FUROSEMIDE
  8. PREDNISONE [Concomitant]
     Active Substance: PREDNISONE
  9. ASPIRIN [Concomitant]
     Active Substance: ASPIRIN
  10. CRESTOR [Concomitant]
     Active Substance: ROSUVASTATIN CALCIUM
  11. GABAPENTIN [Concomitant]
     Active Substance: GABAPENTIN
  12. DILTIAZEM [Concomitant]
     Active Substance: DILTIAZEM
  13. HUMALOG [Concomitant]
     Active Substance: INSULIN LISPRO
  14. LANTUS [Concomitant]
     Active Substance: INSULIN GLARGINE
  15. XARELTO [Concomitant]
     Active Substance: RIVAROXABAN

REACTIONS (2)
  - Off label use [Unknown]
  - Gangrene [Unknown]
